FAERS Safety Report 4309943-0 (Version None)
Quarter: 2004Q1

REPORT INFORMATION
  Report Type: 
  Country: None (occurrence: None)
  Receive Date: 20040301
  Receipt Date: 20040223
  Transmission Date: 20041129
  Serious: Yes (Other)
  Sender: FDA-Public Use
  Company Number: 48940

PATIENT
  Age: 20 Year
  Sex: Male

DRUGS (2)
  1. 12 HOUR PSEUDOEPHED, 120 MG, PERRIGO COMPANY [Suspect]
     Indication: SINUS HEADACHE
     Dosage: 10 TABLETS DAILY
  2. IBUPROFEN [Concomitant]

REACTIONS (3)
  - CALCULUS URINARY [None]
  - OVERDOSE [None]
  - RENAL FAILURE ACUTE [None]
